FAERS Safety Report 23479412 (Version 2)
Quarter: 2024Q1

REPORT INFORMATION
  Report Type: Spontaneous
  Country: IT (occurrence: IT)
  Receive Date: 20240205
  Receipt Date: 20240214
  Transmission Date: 20240410
  Serious: Yes (Other)
  Sender: FDA-Public Use
  Company Number: None

PATIENT
  Age: 83 Year
  Sex: Female

DRUGS (14)
  1. RIVAROXABAN [Suspect]
     Active Substance: RIVAROXABAN
     Indication: Atrial fibrillation
     Dosage: XARELTO*28 COATED TABLETS 20 MG - POSOLOGY SCHEME: 1 TABLET A DAY
     Route: 048
  2. LASIX [Concomitant]
     Active Substance: FUROSEMIDE
     Indication: Hypertension
  3. LASIX [Concomitant]
     Active Substance: FUROSEMIDE
     Indication: Cardiac failure
  4. LERCADIP [LERCANIDIPINE HYDROCHLORIDE] [Concomitant]
     Indication: Hypertension
     Dosage: LERCADIP*28CPR RIV 20MG 1 CP/DIE
     Route: 048
     Dates: start: 2023
  5. ALLOPURINOL [Concomitant]
     Active Substance: ALLOPURINOL
     Indication: Hyperuricaemia
     Dosage: ZYLORIC*30CPR DIV 300MG 1 CP/DIE
     Route: 048
     Dates: start: 2023
  6. NEBIVOLOL HYDROCHLORIDE [Concomitant]
     Active Substance: NEBIVOLOL HYDROCHLORIDE
     Indication: Cardiac failure
     Dosage: LOBIVON*28CPR 5MG 1 CP/DIE
     Route: 048
     Dates: start: 2023
  7. NEBIVOLOL HYDROCHLORIDE [Concomitant]
     Active Substance: NEBIVOLOL HYDROCHLORIDE
     Indication: Hypertension
  8. PANTOPRAZOLO DOC [Concomitant]
     Indication: Gastrooesophageal reflux disease
     Dosage: PANTOPRAZOLO DOC*28CPR 20MG  1 CP/DIE
     Route: 048
     Dates: start: 2022
  9. AMLODIPINE\INDAPAMIDE\PERINDOPRIL [Concomitant]
     Active Substance: AMLODIPINE\INDAPAMIDE\PERINDOPRIL
     Indication: Cardiac failure
     Dosage: TRIPLIAM*30CPR 10+2,5+10MG FL  1 CP/DIE
     Route: 048
     Dates: start: 2022, end: 2023
  10. AMLODIPINE\INDAPAMIDE\PERINDOPRIL [Concomitant]
     Active Substance: AMLODIPINE\INDAPAMIDE\PERINDOPRIL
     Indication: Hypertension
  11. PERINDOPRIL DOC [Concomitant]
     Indication: Cardiac failure
     Dosage: PERINDOPRIL DOC*30CPR 4MG  1 CP/DIE
     Route: 048
     Dates: start: 2023
  12. PERINDOPRIL DOC [Concomitant]
     Indication: Hypertension
  13. CHOLECALCIFEROL [Concomitant]
     Active Substance: CHOLECALCIFEROL
     Indication: Vitamin D deficiency
     Dosage: DIBASE* OS SOL 2FL 2,5ML50000UI  1 FL OGNI 15 GIORNI
     Route: 048
     Dates: start: 2022, end: 2023
  14. PRISMA [OMEPRAZOLE] [Concomitant]
     Indication: Skin ulcer
     Dosage: PRISMA*50CPS 24MG  2 CP/DIE
     Route: 048
     Dates: start: 2023

REACTIONS (2)
  - Renal failure [Not Recovered/Not Resolved]
  - Glomerular filtration rate decreased [Not Recovered/Not Resolved]

NARRATIVE: CASE EVENT DATE: 20220301
